FAERS Safety Report 4319249-1 (Version None)
Quarter: 2004Q1

REPORT INFORMATION
  Report Type: 
  Country: None (occurrence: None)
  Receive Date: 20040316
  Receipt Date: 20040304
  Transmission Date: 20041129
  Serious: Yes (Hospitalization)
  Sender: FDA-Public Use
  Company Number: UK068497

PATIENT
  Age: 27 Year
  Sex: Male

DRUGS (1)
  1. ARANESP [Suspect]
     Indication: RENAL FAILURE CHRONIC
     Dosage: 80 MCG, 2 IN 1 WEEKS, SC
     Route: 058
     Dates: start: 20010101

REACTIONS (1)
  - ANAEMIA [None]
